FAERS Safety Report 20626629 (Version 4)
Quarter: 2022Q3

REPORT INFORMATION
  Report Type: Report from Study
  Country: US (occurrence: US)
  Receive Date: 20220323
  Receipt Date: 20220623
  Transmission Date: 20221026
  Serious: No
  Sender: FDA-Public Use
  Company Number: US-NOVARTISTESTPH-NVSC2022US066194

PATIENT
  Sex: Male

DRUGS (1)
  1. ENTRESTO [Suspect]
     Active Substance: SACUBITRIL\VALSARTAN
     Indication: Product used for unknown indication
     Dosage: 1 DOSAGE FORM, BID (24/26 MG)
     Route: 048
     Dates: start: 202112

REACTIONS (7)
  - Ill-defined disorder [Unknown]
  - Sneezing [Unknown]
  - Pain [Unknown]
  - Disturbance in attention [Unknown]
  - Movement disorder [Unknown]
  - Fall [Unknown]
  - Asthenia [Unknown]
